FAERS Safety Report 9125751 (Version 2)
Quarter: 2013Q1

REPORT INFORMATION
  Report Type: Spontaneous
  Country: CA (occurrence: CA)
  Receive Date: 20130121
  Receipt Date: 20130316
  Transmission Date: 20140127
  Serious: Yes (Death)
  Sender: FDA-Public Use
  Company Number: CA-AMGEN-CANSP2013002758

PATIENT
  Age: 70 Year
  Sex: Male

DRUGS (2)
  1. XGEVA [Suspect]
     Indication: HEPATIC CANCER
     Dosage: 120 MG, QMO
     Dates: start: 20121022
  2. XGEVA [Suspect]
     Indication: HYPERCALCAEMIA

REACTIONS (2)
  - Malignant neoplasm progression [Fatal]
  - Gingival bleeding [Recovered/Resolved]
